FAERS Safety Report 18221387 (Version 1)
Quarter: 2020Q3

REPORT INFORMATION
  Report Type: Spontaneous
  Country: US (occurrence: US)
  Receive Date: 20200902
  Receipt Date: 20200902
  Transmission Date: 20201103
  Serious: No
  Sender: FDA-Public Use
  Company Number: US-PFIZER INC-2019270330

PATIENT
  Age: 76 Year

DRUGS (5)
  1. DILANTIN [Suspect]
     Active Substance: PHENYTOIN
     Dosage: 30 MG, DAILY
     Route: 048
     Dates: start: 20200414
  2. DILANTIN [Suspect]
     Active Substance: PHENYTOIN
     Dosage: 100 MG AND 30 MG
  3. DILANTIN [Suspect]
     Active Substance: PHENYTOIN
     Dosage: 30 MG, DAILY
     Route: 048
     Dates: start: 20190403
  4. DILANTIN [Suspect]
     Active Substance: PHENYTOIN
     Indication: PARTIAL SEIZURES
     Dosage: 300 MG, DAILY
     Route: 048
     Dates: start: 20190403
  5. DILANTIN [Suspect]
     Active Substance: PHENYTOIN
     Dosage: 300 MG, DAILY
     Route: 048
     Dates: start: 20200414

REACTIONS (1)
  - Panic reaction [Unknown]
